FAERS Safety Report 7345710-1 (Version None)
Quarter: 2011Q1

REPORT INFORMATION
  Report Type: 
  Country: None (occurrence: None)
  Receive Date: 20110310
  Receipt Date: 20110228
  Transmission Date: 20110831
  Serious: Yes (Hospitalization)
  Sender: FDA-Public Use
  Company Number: US-MYLANLABS-2011S1000366

PATIENT
  Age: 48 Year
  Sex: Female
  Weight: 117.03 kg

DRUGS (9)
  1. METOPROLOL TARTRATE [Suspect]
     Route: 048
     Dates: start: 20110107
  2. SIMVASTATIN [Suspect]
     Indication: BLOOD CHOLESTEROL INCREASED
     Route: 048
     Dates: start: 20090401, end: 20100901
  3. LISINOPRIL [Suspect]
     Indication: BLOOD PRESSURE INCREASED
     Route: 048
     Dates: start: 20060101, end: 20100901
  4. METOPROLOL TARTRATE [Suspect]
     Indication: BLOOD PRESSURE INCREASED
     Route: 048
     Dates: start: 20080101, end: 20100901
  5. PLAVIX [Concomitant]
     Dates: start: 20060101
  6. LEVEMIR [Concomitant]
     Indication: DIABETES MELLITUS
     Route: 058
     Dates: start: 20090101
  7. NITROGLYCERIN [Concomitant]
     Dates: start: 20060101
  8. AMLODIPINE [Suspect]
     Indication: BLOOD PRESSURE INCREASED
     Route: 048
     Dates: start: 20080101, end: 20100901
  9. APIDRA [Concomitant]
     Indication: DIABETES MELLITUS
     Route: 058
     Dates: start: 20100901

REACTIONS (6)
  - DIZZINESS [None]
  - MYOCARDIAL INFARCTION [None]
  - ERUCTATION [None]
  - CHEST PAIN [None]
  - BLOOD PRESSURE INCREASED [None]
  - HEADACHE [None]
